FAERS Safety Report 13756663 (Version 1)
Quarter: 2017Q3

REPORT INFORMATION
  Report Type: Spontaneous
  Country: AT (occurrence: AT)
  Receive Date: 20170714
  Receipt Date: 20170714
  Transmission Date: 20171127
  Serious: Yes (Other)
  Sender: FDA-Public Use
  Company Number: AT-B.I. PHARMACEUTICALS,INC./RIDGEFIELD-2017-BI-028704

PATIENT
  Sex: Female
  Weight: 57 kg

DRUGS (4)
  1. GILOTRIF [Suspect]
     Active Substance: AFATINIB
     Indication: LUNG ADENOCARCINOMA
     Route: 048
     Dates: start: 20170420, end: 20170504
  2. GILOTRIF [Suspect]
     Active Substance: AFATINIB
     Indication: EGFR GENE MUTATION
     Route: 048
  3. DAFLON [Concomitant]
     Active Substance: DIOSMIN\HESPERIDIN
     Indication: PRODUCT USED FOR UNKNOWN INDICATION
     Route: 065
  4. MICARDIS [Concomitant]
     Active Substance: TELMISARTAN
     Indication: PRODUCT USED FOR UNKNOWN INDICATION
     Dosage: UNIT DOSE AND DAILY DOSE: 40/12.5 MILLIGRAM
     Route: 065

REACTIONS (7)
  - Finger deformity [Unknown]
  - Mucosal inflammation [Unknown]
  - Gingivitis [Recovered/Resolved]
  - Stomatitis [Recovered/Resolved]
  - Cheilitis [Recovered/Resolved]
  - Foot deformity [Unknown]
  - Onychoclasis [Unknown]

NARRATIVE: CASE EVENT DATE: 20170428
